FAERS Safety Report 7906076-9 (Version None)
Quarter: 2011Q4

REPORT INFORMATION
  Report Type: 
  Country: None (occurrence: None)
  Receive Date: 20111109
  Receipt Date: 20111109
  Transmission Date: 20120403
  Serious: Yes (Hospitalization, Other)
  Sender: FDA-Public Use
  Company Number: None

PATIENT
  Sex: Female
  Weight: 92.9874 kg

DRUGS (1)
  1. LEXAPRO [Suspect]
     Indication: SPINAL COLUMN STENOSIS
     Dosage: 10MG 1X PER DAY
     Dates: start: 20110220

REACTIONS (5)
  - BLOOD CHOLESTEROL INCREASED [None]
  - DYSGEUSIA [None]
  - WEIGHT INCREASED [None]
  - PYREXIA [None]
  - HYPERTENSION [None]
